FAERS Safety Report 5782643-6 (Version None)
Quarter: 2008Q2

REPORT INFORMATION
  Report Type: 
  Country: None (occurrence: None)
  Receive Date: 20080619
  Receipt Date: 20080619
  Transmission Date: 20081010
  Serious: No
  Sender: FDA-Public Use
  Company Number: None

PATIENT
  Sex: Female
  Weight: 47.6277 kg

DRUGS (7)
  1. EXELON [Suspect]
     Indication: DEMENTIA
     Dosage: 1 PATCH QD. TOPICAL
     Route: 061
     Dates: start: 20080110, end: 20080315
  2. LANOXIN [Concomitant]
  3. TOPROL ER [Concomitant]
  4. PROTONIX [Concomitant]
  5. SYNTHROID [Concomitant]
  6. BENICAR [Concomitant]
  7. ASMANEX TWISTHALER [Concomitant]

REACTIONS (2)
  - APPLICATION SITE ERYTHEMA [None]
  - APPLICATION SITE PRURITUS [None]
